APPROVED DRUG PRODUCT: NAPROXEN SODIUM
Active Ingredient: NAPROXEN SODIUM
Strength: EQ 200MG BASE
Dosage Form/Route: CAPSULE;ORAL
Application: A214463 | Product #001
Applicant: PATHEON SOFTGELS BV
Approved: Jan 10, 2023 | RLD: No | RS: No | Type: OTC